FAERS Safety Report 18704643 (Version 1)
Quarter: 2021Q1

REPORT INFORMATION
  Report Type: Spontaneous
  Country: US (occurrence: US)
  Receive Date: 20210106
  Receipt Date: 20210106
  Transmission Date: 20210419
  Serious: Yes (Other)
  Sender: FDA-Public Use
  Company Number: US-JNJFOC-20201252851

PATIENT
  Sex: Male

DRUGS (2)
  1. VALIUM [Suspect]
     Active Substance: DIAZEPAM
     Indication: PRODUCT USED FOR UNKNOWN INDICATION
     Dosage: 150 TO 300 MG
     Route: 048
  2. INVEGA [Suspect]
     Active Substance: PALIPERIDONE
     Indication: PRODUCT USED FOR UNKNOWN INDICATION
     Route: 048

REACTIONS (11)
  - Suicidal ideation [Unknown]
  - Anger [Unknown]
  - Blood glucose increased [Unknown]
  - Weight increased [Unknown]
  - Suicide attempt [Unknown]
  - Social avoidant behaviour [Unknown]
  - Somnambulism [Unknown]
  - Anhedonia [Unknown]
  - Insomnia [Unknown]
  - Accidental exposure to product [Unknown]
  - Abnormal behaviour [Unknown]

NARRATIVE: CASE EVENT DATE: 20201225
